FAERS Safety Report 14737686 (Version 1)
Quarter: 2018Q2

REPORT INFORMATION
  Report Type: Spontaneous
  Country: GB (occurrence: GB)
  Receive Date: 20180409
  Receipt Date: 20180409
  Transmission Date: 20180711
  Serious: Yes (Death, Hospitalization)
  Sender: FDA-Public Use
  Company Number: GB-PFIZER INC-2018140868

PATIENT
  Age: 83 Year

DRUGS (1)
  1. SPIRONOLACTONE. [Suspect]
     Active Substance: SPIRONOLACTONE

REACTIONS (4)
  - Acute kidney injury [Unknown]
  - Arrhythmia [Unknown]
  - Cardiac arrest [Fatal]
  - Metabolic acidosis [Unknown]

NARRATIVE: CASE EVENT DATE: 20171001
